FAERS Safety Report 8407365-4 (Version None)
Quarter: 2012Q2

REPORT INFORMATION
  Report Type: 
  Country: None (occurrence: None)
  Receive Date: 20120604
  Receipt Date: 20120521
  Transmission Date: 20120825
  Serious: Yes (Disabling, Other)
  Sender: FDA-Public Use
  Company Number: US-ELI_LILLY_AND_COMPANY-USA030741883

PATIENT
  Sex: Male
  Weight: 97.727 kg

DRUGS (10)
  1. AMBIEN [Concomitant]
     Indication: SLEEP DISORDER
     Dosage: 10 MG, EACH EVENING
  2. NEURONTIN [Concomitant]
     Dosage: 300 MG, 3/D
  3. BUSPAR [Concomitant]
     Indication: ANXIETY
     Dosage: 5 MG, 3/D
  4. PERCOCET [Concomitant]
  5. SEROQUEL [Concomitant]
     Dosage: 700 MG, DAILY (1/D)
     Dates: start: 20030213
  6. KLONOPIN [Concomitant]
     Indication: ANXIETY
     Dosage: 0.5 MG, 3/D
  7. ZYPREXA [Suspect]
     Indication: SCHIZOPHRENIA
     Dosage: 25 MG, DAILY (1/D)
     Dates: start: 20020904, end: 20030301
  8. DEPAKOTE [Concomitant]
     Dosage: 500 MG, 4/D
     Dates: start: 19990101
  9. ARICEPT [Concomitant]
     Indication: MANIA
     Dosage: 5 MG, AS NEEDED
  10. WELLBUTRIN [Concomitant]
     Dosage: 200 MG, EACH MORNING
     Dates: start: 20030402

REACTIONS (14)
  - DIABETES MELLITUS [None]
  - ANXIETY [None]
  - PULMONARY SARCOIDOSIS [None]
  - HYPERGLYCAEMIA [None]
  - DEPRESSION [None]
  - WEIGHT INCREASED [None]
  - SENSATION OF HEAVINESS [None]
  - BLOOD GLUCOSE INCREASED [None]
  - OVERDOSE [None]
  - TREATMENT NONCOMPLIANCE [None]
  - DYSURIA [None]
  - THROMBOSIS [None]
  - DIABETIC NEUROPATHY [None]
  - GLUCOSE URINE PRESENT [None]
